FAERS Safety Report 12668302 (Version 1)
Quarter: 2016Q3

REPORT INFORMATION
  Report Type: Other
  Country: US (occurrence: US)
  Receive Date: 20160819
  Receipt Date: 20160819
  Transmission Date: 20161109
  Serious: Yes (Other)
  Sender: FDA-Public Use
  Company Number: US-SIM_00732_2016

PATIENT
  Sex: Male

DRUGS (1)
  1. COMPLETE EYE RELIEF (HOMEOPATHIC) [Suspect]
     Active Substance: HOMEOPATHICS
     Indication: PRODUCT USED FOR UNKNOWN INDICATION
     Dosage: DROPS IN LEFT EYE/NI/
     Route: 047
     Dates: start: 20160807, end: 201608

REACTIONS (1)
  - Vision blurred [Unknown]

NARRATIVE: CASE EVENT DATE: 20160808
